FAERS Safety Report 7019129-7 (Version None)
Quarter: 2010Q3

REPORT INFORMATION
  Report Type: 
  Country: None (occurrence: None)
  Receive Date: 20100928
  Receipt Date: 20100917
  Transmission Date: 20110219
  Serious: Yes (Hospitalization)
  Sender: FDA-Public Use
  Company Number: B0676199A

PATIENT
  Sex: Female

DRUGS (8)
  1. REQUIP [Suspect]
     Indication: PARKINSONISM
     Route: 065
     Dates: start: 20070701
  2. SINEMET [Suspect]
     Indication: PARKINSONISM
     Route: 065
     Dates: start: 20070701
  3. MADOPAR [Concomitant]
     Dates: start: 20070601
  4. AMANTADINE HCL [Concomitant]
     Route: 048
     Dates: start: 20070601
  5. LASIX [Concomitant]
  6. ASPIRIN [Concomitant]
  7. MODURETIC 5-50 [Concomitant]
     Dates: start: 20100617
  8. TRIATEC [Concomitant]

REACTIONS (2)
  - COGNITIVE DISORDER [None]
  - HALLUCINATION [None]
